FAERS Safety Report 11395507 (Version 1)
Quarter: 2015Q3

REPORT INFORMATION
  Report Type: Spontaneous
  Country: US (occurrence: None)
  Receive Date: 20150817
  Receipt Date: 20150817
  Transmission Date: 20151125
  Serious: Yes (Other)
  Sender: FDA-Public Use
  Company Number: None

PATIENT
  Age: 61 Year
  Sex: Female
  Weight: 61.69 kg

DRUGS (4)
  1. NATURE-THROID [Concomitant]
     Active Substance: THYROID, PORCINE
  2. ZYERTEC [Concomitant]
  3. CITALOPRAM HYDROBROMIDE 10 MG TORRENT PHARMACEUTICALS [Suspect]
     Active Substance: CITALOPRAM HYDROBROMIDE
     Indication: DEPRESSION
     Dosage: 1 PILL ONCE DAILY
     Route: 048
     Dates: start: 20150806, end: 20150814
  4. DHEA [Concomitant]
     Active Substance: PRASTERONE

REACTIONS (8)
  - Loss of consciousness [None]
  - Product substitution issue [None]
  - Headache [None]
  - Product quality issue [None]
  - Fall [None]
  - Joint injury [None]
  - Dizziness [None]
  - Nausea [None]

NARRATIVE: CASE EVENT DATE: 20150814
